FAERS Safety Report 11253568 (Version 3)
Quarter: 2015Q3

REPORT INFORMATION
  Report Type: Spontaneous
  Country: US (occurrence: US)
  Receive Date: 20150709
  Receipt Date: 20150805
  Transmission Date: 20151125
  Serious: Yes (Life-Threatening, Hospitalization)
  Sender: FDA-Public Use
  Company Number: US-MERCK-1507USA003205

PATIENT
  Age: 78 Year
  Sex: Male
  Weight: 60 kg

DRUGS (4)
  1. PERMETHRIN. [Concomitant]
     Active Substance: PERMETHRIN
     Indication: ACARODERMATITIS
     Dosage: UNK, QW
     Route: 061
     Dates: start: 20150619, end: 20150727
  2. LASIX [Concomitant]
     Active Substance: FUROSEMIDE
     Dosage: UNK
     Route: 048
  3. METOPROLOL [Concomitant]
     Active Substance: METOPROLOL
     Dosage: UNK
     Route: 048
  4. STROMECTOL [Suspect]
     Active Substance: IVERMECTIN
     Indication: ACARODERMATITIS
     Dosage: 12 MG, DAILY
     Route: 048
     Dates: start: 20150626, end: 20150627

REACTIONS (4)
  - Generalised oedema [Recovered/Resolved]
  - Hyponatraemia [Recovered/Resolved]
  - Drug ineffective for unapproved indication [Unknown]
  - Drug administration error [Unknown]

NARRATIVE: CASE EVENT DATE: 20150626
